FAERS Safety Report 4440879-0 (Version None)
Quarter: 2004Q3

REPORT INFORMATION
  Report Type: 
  Country: None (occurrence: None)
  Receive Date: 20040728
  Receipt Date: 20040316
  Transmission Date: 20050211
  Serious: No
  Sender: FDA-Public Use
  Company Number: USA040157406

PATIENT
  Age: 73 Year
  Sex: Male

DRUGS (2)
  1. STRATTERA [Suspect]
     Indication: ATTENTION DEFICIT/HYPERACTIVITY DISORDER
     Dosage: 40 MG/DAY
     Dates: start: 20040122
  2. DOXAZOSIN [Concomitant]

REACTIONS (9)
  - DEPRESSION [None]
  - DIZZINESS [None]
  - FATIGUE [None]
  - HEART RATE INCREASED [None]
  - LOSS OF LIBIDO [None]
  - MICTURITION DISORDER [None]
  - MIDDLE INSOMNIA [None]
  - RESTLESSNESS [None]
  - SOMNOLENCE [None]
